FAERS Safety Report 4727061-4 (Version None)
Quarter: 2005Q3

REPORT INFORMATION
  Report Type: 
  Country: None (occurrence: None)
  Receive Date: 20050726
  Receipt Date: 20050726
  Transmission Date: 20060218
  Serious: Yes (Hospitalization)
  Sender: FDA-Public Use
  Company Number: None

PATIENT
  Age: 55 Year
  Sex: Male
  Weight: 99.8 kg

DRUGS (8)
  1. METHADONE [Suspect]
  2. GABAPENTIN [Concomitant]
  3. ACETAMINOPHEN [Concomitant]
  4. ALBUTEROL [Concomitant]
  5. IBUPROFEN [Concomitant]
  6. AMITRIPTYLINE HCL [Concomitant]
  7. ALBUTEROL [Concomitant]
  8. LORAZEPAM [Concomitant]

REACTIONS (1)
  - DIZZINESS [None]
